FAERS Safety Report 13022673 (Version 1)
Quarter: 2016Q4

REPORT INFORMATION
  Report Type: Spontaneous
  Country: PL (occurrence: PL)
  Receive Date: 20161213
  Receipt Date: 20161213
  Transmission Date: 20170207
  Serious: Yes (Other)
  Sender: FDA-Public Use
  Company Number: PL-TEVA-718470ACC

PATIENT
  Age: 38 Year
  Sex: Male
  Weight: 88 kg

DRUGS (1)
  1. VIVACE [Suspect]
     Active Substance: RAMIPRIL
     Indication: ESSENTIAL HYPERTENSION
     Dosage: DOSE 5 MG IN THE MORNING AND 2.5MG IN THE EVENING
     Route: 048
     Dates: start: 20151228, end: 20160210

REACTIONS (12)
  - Vomiting [Recovered/Resolved]
  - Erythema [Recovered/Resolved]
  - Rash [Recovered/Resolved]
  - Hyperhidrosis [Recovered/Resolved]
  - Dysuria [Recovered/Resolved]
  - Nausea [Recovered/Resolved]
  - Cough [Recovered/Resolved]
  - Gingival bleeding [Recovered/Resolved]
  - Dizziness [Recovered/Resolved]
  - Asthenia [Recovered/Resolved]
  - Abdominal pain [Recovered/Resolved]
  - Spinal pain [Recovered/Resolved]

NARRATIVE: CASE EVENT DATE: 20151228
